FAERS Safety Report 8340729-6 (Version None)
Quarter: 2012Q2

REPORT INFORMATION
  Report Type: 
  Country: None (occurrence: None)
  Receive Date: 20120507
  Receipt Date: 20120427
  Transmission Date: 20120825
  Serious: Yes (Death, Other)
  Sender: FDA-Public Use
  Company Number: DE-ROCHE-1059034

PATIENT
  Sex: Female
  Weight: 57.5 kg

DRUGS (21)
  1. MIRCERA [Suspect]
     Route: 058
     Dates: start: 20101005
  2. BISOPROLOL FUMARATE [Concomitant]
     Dates: start: 20091221
  3. BONDIOL [Concomitant]
     Dates: start: 20091221
  4. MIRCERA [Suspect]
     Route: 058
     Dates: start: 20101104, end: 20110104
  5. CREON [Concomitant]
     Dates: start: 20091221
  6. ENOXAPARIN SODIUM [Concomitant]
     Dates: start: 20100524
  7. BICANORM [Concomitant]
     Dates: start: 20091221
  8. TORSEMIDE [Concomitant]
     Dates: start: 20091221
  9. RENAGEL [Concomitant]
     Dates: start: 20100210
  10. MIRCERA [Suspect]
     Route: 058
     Dates: start: 20100806
  11. LANTUS [Concomitant]
     Dosage: 100 IU/ML
     Dates: start: 20091221
  12. CLONIDINE [Concomitant]
     Dates: start: 20091221
  13. DELIX PLUS [Concomitant]
     Dates: start: 20091221
  14. MIRCERA [Suspect]
     Route: 058
     Dates: start: 20100905, end: 20101005
  15. MIRCERA [Suspect]
     Route: 058
     Dates: start: 20110126
  16. CANDESARTAN CILEXETIL [Concomitant]
     Dates: start: 20091221
  17. XIPAMID [Concomitant]
     Dates: start: 20091221
  18. MIRCERA [Suspect]
     Indication: NEPHROGENIC ANAEMIA
     Route: 058
     Dates: start: 20100324
  19. MIRCERA [Suspect]
     Route: 058
     Dates: start: 20100606
  20. MIRCERA [Suspect]
     Dosage: DOSE INCREASED
     Route: 058
  21. LIPROLOG [Concomitant]

REACTIONS (2)
  - DEATH [None]
  - HAEMOGLOBIN DECREASED [None]
